FAERS Safety Report 5766721-3 (Version None)
Quarter: 2008Q2

REPORT INFORMATION
  Report Type: 
  Country: None (occurrence: None)
  Receive Date: 20080609
  Receipt Date: 20080523
  Transmission Date: 20081010
  Serious: Yes (Other)
  Sender: FDA-Public Use
  Company Number: 2008S1005231

PATIENT
  Age: 84 Year
  Sex: Female
  Weight: 52.1637 kg

DRUGS (4)
  1. PHOSPHOSODA FLAVOR NOT SPECIFIED [Suspect]
     Indication: COLONOSCOPY
     Dosage: X1; PO
     Route: 048
     Dates: start: 20080501, end: 20080501
  2. DIOVAN [Concomitant]
  3. TENORMIN [Concomitant]
  4. LIPITOR [Concomitant]

REACTIONS (2)
  - ASTHENIA [None]
  - HYPERTENSION [None]
